FAERS Safety Report 8886873 (Version 1)
Quarter: 2012Q4

REPORT INFORMATION
  Report Type: Report from Study
  Country: US (occurrence: US)
  Receive Date: 20121105
  Receipt Date: 20121105
  Transmission Date: 20130627
  Serious: Yes (Hospitalization, Other)
  Sender: FDA-Public Use
  Company Number: US-ROCHE-GNE324035

PATIENT
  Age: 76 None
  Sex: Female
  Weight: 79.45 kg

DRUGS (10)
  1. OMALIZUMAB [Suspect]
     Indication: ASTHMA
     Route: 058
     Dates: start: 20090219
  2. ADVAIR DISKUS [Concomitant]
     Indication: ASTHMA
     Route: 050
  3. ALBUTEROL [Concomitant]
     Indication: ASTHMA
     Route: 065
  4. QVAR [Concomitant]
     Indication: ASTHMA
     Route: 050
  5. SINGULAIR [Concomitant]
     Indication: ASTHMA
     Route: 048
  6. ALLEGRA [Concomitant]
     Indication: PRODUCT USED FOR UNKNOWN INDICATION
  7. ATENOLOL [Concomitant]
     Indication: PRODUCT USED FOR UNKNOWN INDICATION
  8. AZITHROMYCIN [Concomitant]
     Indication: PRODUCT USED FOR UNKNOWN INDICATION
  9. INDAPAMIDE [Concomitant]
     Indication: PRODUCT USED FOR UNKNOWN INDICATION
  10. LOSARTAN [Concomitant]
     Indication: PRODUCT USED FOR UNKNOWN INDICATION

REACTIONS (9)
  - Fall [Unknown]
  - Asthma [Unknown]
  - Skin discolouration [Unknown]
  - Alopecia [Unknown]
  - Fatigue [Unknown]
  - Laboratory test abnormal [Unknown]
  - Pruritus [Unknown]
  - Nausea [Not Recovered/Not Resolved]
  - Malaise [Not Recovered/Not Resolved]
